FAERS Safety Report 7816518 (Version 2)
Quarter: 2014Q1

REPORT INFORMATION
  Report Type: Spontaneous
  Country: FR (occurrence: FR)
  Receive Date: 20110217
  Receipt Date: 20140306
  Transmission Date: 20141002
  Serious: Yes (Death, Hospitalization)
  Sender: FDA-Public Use
  Company Number: FR-JNJFOC-20110203429

PATIENT
  Age: 0 None
  Sex: 0

DRUGS (9)
  1. REMICADE [Suspect]
     Indication: COLITIS ULCERATIVE
     Route: 064
     Dates: start: 20090827
  2. REMICADE [Suspect]
     Indication: COLITIS ULCERATIVE
     Route: 064
     Dates: start: 20090813
  3. REMICADE [Suspect]
     Indication: COLITIS
     Route: 064
     Dates: start: 20090813
  4. REMICADE [Suspect]
     Indication: COLITIS
     Route: 064
     Dates: start: 20090827
  5. SOLUPRED [Suspect]
     Indication: FOETAL EXPOSURE DURING PREGNANCY
     Route: 064
     Dates: start: 20090625
  6. FIVASA [Suspect]
     Indication: FOETAL EXPOSURE DURING PREGNANCY
     Route: 064
  7. COLOFOAM [Suspect]
     Indication: FOETAL EXPOSURE DURING PREGNANCY
     Route: 064
     Dates: start: 20090625
  8. INEXIUM [Suspect]
     Indication: FOETAL EXPOSURE DURING PREGNANCY
     Route: 064
     Dates: start: 20090625
  9. OROCAL [Suspect]
     Indication: FOETAL EXPOSURE DURING PREGNANCY
     Route: 064
     Dates: start: 20090625

REACTIONS (4)
  - Foetal death [Fatal]
  - Listeriosis [Fatal]
  - Premature baby [Fatal]
  - Foetal exposure during pregnancy [Recovered/Resolved]
